FAERS Safety Report 23052578 (Version 5)
Quarter: 2023Q4

REPORT INFORMATION
  Report Type: Report from Study
  Country: IL (occurrence: IL)
  Receive Date: 20231011
  Receipt Date: 20231123
  Transmission Date: 20240110
  Serious: Yes (Hospitalization, Other)
  Sender: FDA-Public Use
  Company Number: IL-ABBVIE-5441817

PATIENT
  Sex: Female

DRUGS (2)
  1. SKYRIZI [Suspect]
     Active Substance: RISANKIZUMAB-RZAA
     Indication: Crohn^s disease
     Route: 058
     Dates: start: 2023
  2. SKYRIZI [Suspect]
     Active Substance: RISANKIZUMAB-RZAA
     Indication: Crohn^s disease
     Dosage: FORM STRENGTH: 600 MILLIGRAM?LAST ADMIN DATE--2023
     Route: 042
     Dates: start: 20230718

REACTIONS (7)
  - Intestinal fistula [Not Recovered/Not Resolved]
  - Nephrostomy [Not Recovered/Not Resolved]
  - Intestinal fistula [Recovered/Resolved]
  - Stoma site discharge [Not Recovered/Not Resolved]
  - Renal disorder [Recovering/Resolving]
  - Injection site swelling [Recovering/Resolving]
  - Intestinal fistula [Recovering/Resolving]

NARRATIVE: CASE EVENT DATE: 20230101
